FAERS Safety Report 4970138-9 (Version None)
Quarter: 2006Q2

REPORT INFORMATION
  Report Type: 
  Country: None (occurrence: None)
  Receive Date: 20060412
  Receipt Date: 20060331
  Transmission Date: 20061013
  Serious: Yes (Other)
  Sender: FDA-Public Use
  Company Number: JP-BRISTOL-MYERS SQUIBB COMPANY-13333687

PATIENT
  Age: 71 Year
  Sex: Male

DRUGS (2)
  1. MAXIPIME [Suspect]
     Indication: FEBRILE NEUTROPENIA
     Dosage: 10-MAR-2005 TO 11-MAR-2005 1 GRAM X 2/DAY INCREASED TO 2 GRAM/DAY ON 12-MAR-2005
     Dates: start: 20050310, end: 20050322
  2. NEUTROGIN [Suspect]
     Dosage: DOSE 100 MICROUNITS 100 UG/DAY FROM 10-MAR-2005 TO 14-MAR-2005, 100 UG X2/DAY STARTING 15-MAR-2005
     Dates: start: 20050310, end: 20050321

REACTIONS (4)
  - LOSS OF CONSCIOUSNESS [None]
  - MUSCULOSKELETAL STIFFNESS [None]
  - PYREXIA [None]
  - RASH [None]
